FAERS Safety Report 6192122-2 (Version None)
Quarter: 2009Q2

REPORT INFORMATION
  Report Type: 
  Country: None (occurrence: None)
  Receive Date: 20090515
  Receipt Date: 20090505
  Transmission Date: 20091009
  Serious: Yes (Hospitalization)
  Sender: FDA-Public Use
  Company Number: FR-ELI_LILLY_AND_COMPANY-FR200904003665

PATIENT
  Age: 65 Year
  Sex: Female
  Weight: 55 kg

DRUGS (7)
  1. CYMBALTA [Suspect]
     Indication: DEPRESSION
     Dosage: 1 D/F, DAILY (1/D)
     Route: 048
     Dates: start: 20090326, end: 20090404
  2. CANDESARTAN CILEXETIL [Concomitant]
     Dosage: 1 D/F, UNKNOWN
     Route: 048
  3. SECTRAL [Concomitant]
     Dosage: 1 D/F, UNKNOWN
     Route: 048
  4. PRAZEPAM [Concomitant]
     Dosage: 1 D/F, UNKNOWN
     Route: 048
  5. VITAMIN D [Concomitant]
     Dosage: 1 D/F, UNKNOWN
     Route: 048
  6. CALCIUM [Concomitant]
     Dosage: 1 D/F, UNKNOWN
     Route: 048
  7. PROTELOS [Concomitant]
     Dosage: 1 D/F, UNKNOWN
     Route: 048

REACTIONS (3)
  - ANGIOEDEMA [None]
  - FALL [None]
  - MALAISE [None]
